FAERS Safety Report 9836715 (Version 1)
Quarter: 2014Q1

REPORT INFORMATION
  Report Type: Spontaneous
  Country: US (occurrence: US)
  Receive Date: 20140123
  Receipt Date: 20140123
  Transmission Date: 20141002
  Serious: Yes (Hospitalization)
  Sender: FDA-Public Use
  Company Number: CHPA2014US000890

PATIENT
  Age: 81 Year
  Sex: Male

DRUGS (3)
  1. GAS-X EXTRA STRENGTH SOFTGELS [Suspect]
     Indication: DIARRHOEA
     Dosage: 1 DF, BID
     Route: 048
     Dates: start: 20131209
  2. GAS-X EXTRA STRENGTH SOFTGELS [Suspect]
     Indication: OFF LABEL USE
  3. ZOCOR [Concomitant]

REACTIONS (3)
  - Gastrointestinal obstruction [Recovered/Resolved]
  - Pain [Recovered/Resolved]
  - Therapeutic response unexpected [Unknown]
